FAERS Safety Report 6367502-2 (Version None)
Quarter: 2009Q3

REPORT INFORMATION
  Report Type: 
  Country: None (occurrence: None)
  Receive Date: 20090921
  Receipt Date: 20090910
  Transmission Date: 20100115
  Serious: Yes (Hospitalization, Disabling, Congenital Anomaly, Other)
  Sender: FDA-Public Use
  Company Number: GB-GILEAD-2009-0023512

PATIENT
  Sex: Female
  Weight: 2.2 kg

DRUGS (9)
  1. TRUVADA [Suspect]
     Indication: HIV INFECTION
     Route: 064
     Dates: start: 20070605, end: 20081001
  2. APTIVUS [Suspect]
     Indication: HIV INFECTION
     Route: 064
     Dates: start: 20070605, end: 20081001
  3. RITONAVIR [Concomitant]
     Indication: HIV INFECTION
     Route: 064
     Dates: start: 20081001
  4. RITONAVIR [Concomitant]
     Route: 064
     Dates: start: 20081023, end: 20081001
  5. RITONAVIR [Concomitant]
     Dates: start: 20070605
  6. INTELENCE [Concomitant]
     Route: 064
     Dates: start: 20081023
  7. ISENTRESS [Concomitant]
     Route: 064
     Dates: start: 20081023
  8. PREDNISOLONE [Concomitant]
     Route: 064
  9. PREZISTA [Concomitant]
     Route: 064
     Dates: start: 20081023

REACTIONS (11)
  - BLOOD IRON DECREASED [None]
  - CAUDAL REGRESSION SYNDROME [None]
  - CLOACAL EXSTROPHY [None]
  - CONGENITAL MUSCULOSKELETAL ANOMALY [None]
  - EXOMPHALOS [None]
  - GASTROINTESTINAL DISORDER CONGENITAL [None]
  - GENITALIA EXTERNAL AMBIGUOUS [None]
  - LIPODYSTROPHY ACQUIRED [None]
  - MECONIUM STAIN [None]
  - MENINGOMYELOCELE [None]
  - UMBILICAL CORD ABNORMALITY [None]
